FAERS Safety Report 4526523-2 (Version None)
Quarter: 2004Q4

REPORT INFORMATION
  Report Type: 
  Country: None (occurrence: None)
  Receive Date: 20041210
  Receipt Date: 20041130
  Transmission Date: 20050328
  Serious: Yes (Other)
  Sender: FDA-Public Use
  Company Number: 2004099650

PATIENT
  Age: 78 Year
  Sex: Female
  Weight: 59.8748 kg

DRUGS (1)
  1. ROGAINE [Suspect]
     Indication: HYPOTRICHOSIS
     Dosage: 1 ML QD, TOPICAL
     Route: 061
     Dates: start: 20010101

REACTIONS (2)
  - HIP ARTHROPLASTY [None]
  - MOVEMENT DISORDER [None]
